FAERS Safety Report 6453115-0 (Version None)
Quarter: 2009Q4

REPORT INFORMATION
  Report Type: 
  Country: None (occurrence: None)
  Receive Date: 20091124
  Receipt Date: 20091116
  Transmission Date: 20100525
  Serious: No
  Sender: FDA-Public Use
  Company Number: GB-SANOFI-AVENTIS-200911142GDDC

PATIENT
  Age: 21 Year
  Sex: Female

DRUGS (2)
  1. ARAVA [Suspect]
     Indication: ARTHRITIS
     Route: 048
     Dates: end: 20080818
  2. METHOTREXATE [Suspect]
     Dosage: DOSE AS USED: UNK
     Dates: end: 20080818

REACTIONS (1)
  - DRUG EXPOSURE DURING PREGNANCY [None]
